FAERS Safety Report 20043680 (Version 2)
Quarter: 2021Q4

REPORT INFORMATION
  Report Type: Spontaneous
  Country: AU (occurrence: AU)
  Receive Date: 20211108
  Receipt Date: 20211111
  Transmission Date: 20220303
  Serious: Yes (Other)
  Sender: FDA-Public Use
  Company Number: AU-GUERBET / KOREA-AU-20210193

PATIENT
  Age: 39 Year
  Sex: Female

DRUGS (1)
  1. LIPIODOL [Suspect]
     Active Substance: ETHIODIZED OIL
     Indication: Hysterosalpingogram
     Route: 015
     Dates: start: 20210419, end: 20210419

REACTIONS (2)
  - Lipogranuloma [Unknown]
  - Product use in unapproved indication [Unknown]

NARRATIVE: CASE EVENT DATE: 20210719
